FAERS Safety Report 9146047 (Version 2)
Quarter: 2013Q2

REPORT INFORMATION
  Report Type: Spontaneous
  Country: US (occurrence: None)
  Receive Date: 20130219
  Receipt Date: 20130404
  Transmission Date: 20140414
  Serious: Yes (Death)
  Sender: FDA-Public Use
  Company Number: 2013-00357

PATIENT
  Age: 31 Year
  Sex: Female

DRUGS (9)
  1. SERTRALINE (UNKNOWN) (SERTRALINE) [Suspect]
     Indication: PRODUCT USED FOR UNKNOWN INDICATION
  2. AMLODIPINE (UNKNOWN) [Suspect]
     Indication: PRODUCT USED FOR UNKNOWN INDICATION
  3. LOSARTAN (UNKNOWN) (LOSARTAN) [Suspect]
     Indication: PRODUCT USED FOR UNKNOWN INDICATION
  4. METFORMIN/ SITAGLIPTIN (UNKNOWN) [Suspect]
  5. SALICYLATE (UNKNOWN) [Suspect]
     Indication: PRODUCT USED FOR UNKNOWN INDICATION
  6. RISPERIDONE (UNKNOWN) (RISPERIDONE) [Suspect]
     Indication: PRODUCT USED FOR UNKNOWN INDICATION
  7. HYDROXYZINE (UNKNOWN) [Suspect]
     Indication: PRODUCT USED FOR UNKNOWN INDICATION
  8. ZOLPIDEM (UNKNOWN) [Suspect]
     Indication: PRODUCT USED FOR UNKNOWN INDICATION
  9. ROSUVASTATIN (UNKNOWN) [Suspect]
     Indication: PRODUCT USED FOR UNKNOWN INDICATION

REACTIONS (1)
  - Completed suicide [None]
